FAERS Safety Report 7009422-6 (Version None)
Quarter: 2010Q3

REPORT INFORMATION
  Report Type: 
  Country: None (occurrence: None)
  Receive Date: 20100921
  Receipt Date: 20100917
  Transmission Date: 20110219
  Serious: Yes (Hospitalization, Disabling)
  Sender: FDA-Public Use
  Company Number: SP03076

PATIENT
  Age: 65 Year
  Sex: Female

DRUGS (14)
  1. VISICOL [Suspect]
     Indication: BOWEL PREPARATION
     Dosage: (50 GM), ORAL
     Route: 048
     Dates: start: 20100722, end: 20100722
  2. LACTULOSE [Concomitant]
  3. BROMHEXINE HYDROCHLORIDE [Concomitant]
  4. TEPRENONE [Concomitant]
  5. SERRAPEPTASE [Concomitant]
  6. THEOPHYLLINE [Concomitant]
  7. SENNOSIDE [Concomitant]
  8. LANSOPRAZOLE [Concomitant]
  9. OXATOMIDE [Concomitant]
  10. NIFEDIPINE [Concomitant]
  11. SEVELAMER HYDROCHLORIDE [Concomitant]
  12. RILMAZAFONE HYDROCHLORIDE [Concomitant]
  13. BUDESONIDE/FORMOTEROL FUMARATE [Concomitant]
  14. LOXOPROFEN SOIDUM [Concomitant]

REACTIONS (8)
  - DEVICE DIFFICULT TO USE [None]
  - HYPERPHOSPHATAEMIA [None]
  - HYPOAESTHESIA [None]
  - HYPOCALCAEMIA [None]
  - OPTIC NEURITIS [None]
  - TETANY [None]
  - VISION BLURRED [None]
  - VISUAL IMPAIRMENT [None]
